FAERS Safety Report 6241759-0 (Version None)
Quarter: 2009Q2

REPORT INFORMATION
  Report Type: 
  Country: None (occurrence: None)
  Receive Date: 20090623
  Receipt Date: 20090610
  Transmission Date: 20091009
  Serious: Yes (Hospitalization)
  Sender: FDA-Public Use
  Company Number: FR-ELI_LILLY_AND_COMPANY-FR200906002855

PATIENT
  Age: 69 Year
  Sex: Female

DRUGS (6)
  1. ZYPREXA [Suspect]
     Dosage: 5 MG, DAILY (1/D)
     Route: 048
     Dates: start: 20090429, end: 20090504
  2. XANAX [Concomitant]
     Dosage: UNK, UNK
     Route: 048
  3. TERCIAN [Concomitant]
     Dosage: UNK, UNK
     Route: 048
  4. ZOLPIDEM TARTRATE [Concomitant]
     Dosage: UNK, UNK
     Route: 048
  5. THERALENE [Concomitant]
     Dosage: UNK, UNK
     Route: 048
  6. SOTALOL HYDROCHLORIDE [Concomitant]
     Dosage: UNK, UNK
     Route: 048

REACTIONS (3)
  - CONFUSIONAL STATE [None]
  - HEPATOCELLULAR INJURY [None]
  - PYREXIA [None]
